FAERS Safety Report 16237050 (Version 2)
Quarter: 2019Q2

REPORT INFORMATION
  Report Type: Spontaneous
  Country: US (occurrence: US)
  Receive Date: 20190425
  Receipt Date: 20190517
  Transmission Date: 20190711
  Serious: No
  Sender: FDA-Public Use
  Company Number: US-CELGENEUS-USA-20190407303

PATIENT
  Sex: Male

DRUGS (1)
  1. IDHIFA [Suspect]
     Active Substance: ENASIDENIB MESYLATE
     Indication: ACUTE MYELOID LEUKAEMIA
     Dosage: 100 MILLIGRAM
     Route: 048
     Dates: start: 201901

REACTIONS (8)
  - Rash [Unknown]
  - Dysgeusia [Unknown]
  - Pruritus [Unknown]
  - Dry skin [Unknown]
  - Asthenia [Unknown]
  - Fatigue [Unknown]
  - Anosmia [Unknown]
  - Influenza [Unknown]

NARRATIVE: CASE EVENT DATE: 2019
